FAERS Safety Report 4411085-0 (Version None)
Quarter: 2004Q3

REPORT INFORMATION
  Report Type: 
  Country: None (occurrence: None)
  Receive Date: 20040729
  Receipt Date: 20030918
  Transmission Date: 20050211
  Serious: Yes (Other)
  Sender: FDA-Public Use
  Company Number: PHFR2003GB03655

PATIENT
  Age: 33 Year
  Sex: Male

DRUGS (6)
  1. CHLORPROMAZINE [Concomitant]
     Dosage: UNK, PRN
  2. CLOZARIL [Suspect]
     Indication: SCHIZOPHRENIA
     Dosage: 300 MG/DAY
  3. CLOZARIL [Suspect]
     Dosage: 650MG/DAY
     Route: 048
     Dates: start: 19990201, end: 20031201
  4. VALPROATE SODIUM [Concomitant]
     Dosage: 500 MG, BID
     Route: 048
  5. PROPRANOLOL [Concomitant]
     Dosage: 10 MG, BID
     Route: 065
  6. RANITIDINE [Concomitant]
     Dosage: 150 MG, BID
     Route: 065

REACTIONS (3)
  - ANXIETY [None]
  - DIABETES MELLITUS [None]
  - HYPERGLYCAEMIA [None]
